FAERS Safety Report 14115845 (Version 2)
Quarter: 2017Q4

REPORT INFORMATION
  Report Type: Report from Study
  Country: US (occurrence: US)
  Receive Date: 20171023
  Receipt Date: 20171130
  Transmission Date: 20180321
  Serious: No
  Sender: FDA-Public Use
  Company Number: US-009507513-1710USA008213

PATIENT
  Sex: Male

DRUGS (1)
  1. JANUMET [Suspect]
     Active Substance: METFORMIN HYDROCHLORIDE\SITAGLIPTIN PHOSPHATE
     Indication: TYPE 2 DIABETES MELLITUS
     Dosage: UNK
     Route: 048

REACTIONS (2)
  - Drug dose omission [Unknown]
  - Blood glucose increased [Not Recovered/Not Resolved]
